FAERS Safety Report 6748000-0 (Version None)
Quarter: 2010Q2

REPORT INFORMATION
  Report Type: 
  Country: None (occurrence: None)
  Receive Date: 20100528
  Receipt Date: 20100521
  Transmission Date: 20101027
  Serious: Yes (Death, Life-Threatening, Hospitalization)
  Sender: FDA-Public Use
  Company Number: US-AMGEN-KDC407090

PATIENT
  Sex: Female
  Weight: 119.9 kg

DRUGS (14)
  1. PANITUMUMAB [Suspect]
     Indication: COLORECTAL CANCER
     Route: 042
     Dates: start: 20100217, end: 20100331
  2. IRINOTECAN [Suspect]
     Route: 042
     Dates: start: 20100217, end: 20100331
  3. FLUOROURACIL [Suspect]
     Route: 042
     Dates: start: 20100217, end: 20100402
  4. LASIX [Suspect]
     Route: 048
     Dates: start: 20100402
  5. LEUCOVORIN CALCIUM [Concomitant]
     Route: 042
     Dates: start: 20100217, end: 20100331
  6. IMODIUM [Concomitant]
     Route: 048
     Dates: start: 20100407
  7. POTASSIUM [Concomitant]
  8. MAGNESIUM [Concomitant]
  9. FERROUS SULFATE TAB [Concomitant]
  10. MULTI-VITAMINS [Concomitant]
  11. SYNTHROID [Concomitant]
  12. ASPIRIN [Concomitant]
  13. DOXYCYCLINE [Concomitant]
     Dates: start: 20100217, end: 20100312
  14. CIPRO [Concomitant]
     Dates: start: 20100317, end: 20100319

REACTIONS (8)
  - AORTIC VALVE DISEASE [None]
  - CARDIOGENIC SHOCK [None]
  - CARDIOMYOPATHY [None]
  - DEHYDRATION [None]
  - DILATATION VENTRICULAR [None]
  - MITRAL VALVE CALCIFICATION [None]
  - MITRAL VALVE INCOMPETENCE [None]
  - RESPIRATORY FAILURE [None]
